FAERS Safety Report 25595302 (Version 1)
Quarter: 2025Q3

REPORT INFORMATION
  Report Type: Report from Study
  Country: US (occurrence: US)
  Receive Date: 20250723
  Receipt Date: 20250723
  Transmission Date: 20251020
  Serious: Yes (Hospitalization)
  Sender: TAKEDA
  Company Number: US-TAKEDA-2024TUS016817

PATIENT
  Sex: Female

DRUGS (6)
  1. FRUQUINTINIB [Suspect]
     Active Substance: FRUQUINTINIB
     Indication: Colon cancer
  2. FRUQUINTINIB [Suspect]
     Active Substance: FRUQUINTINIB
  3. FRUQUINTINIB [Suspect]
     Active Substance: FRUQUINTINIB
  4. MARINOL [Concomitant]
     Active Substance: DRONABINOL
  5. MORPHINE SULFATE [Concomitant]
     Active Substance: MORPHINE SULFATE
  6. LOPERAMIDE [Concomitant]
     Active Substance: LOPERAMIDE

REACTIONS (10)
  - Malaise [Unknown]
  - Nausea [Recovering/Resolving]
  - Dizziness [Recovering/Resolving]
  - Abdominal pain upper [Recovering/Resolving]
  - Somnolence [Unknown]
  - Gingival discomfort [Unknown]
  - Asthenia [Unknown]
  - Oral pain [Recovering/Resolving]
  - Diarrhoea [Unknown]
  - Decreased appetite [Unknown]
